FAERS Safety Report 8398530-3 (Version None)
Quarter: 2012Q1

REPORT INFORMATION
  Report Type: 
  Country: None (occurrence: None)
  Receive Date: 20120323
  Receipt Date: 20110607
  Transmission Date: 20120608
  Serious: Yes (Other)
  Sender: FDA-Public Use
  Company Number: 163-21880-08040324

PATIENT

DRUGS (4)
  1. ASPIRIN [Concomitant]
  2. DEXAMETHASONE [Suspect]
     Indication: MULTIPLE MYELOMA
     Dosage: 40 MG, DAYS 1, 8, 15, AND 22 OF EACH CYCLE., PO
     Route: 048
     Dates: start: 20060701
  3. CYCLOPHOSPHAMIDE [Suspect]
     Indication: MULTIPLE MYELOMA
     Dosage: 300 MG/M2, DAYS 1, 8, AND 15, UNK
  4. REVLIMID [Suspect]
     Indication: MULTIPLE MYELOMA
     Dosage: 25 MG, DAILY ON DAYS 1-21 OF A 28-DAY CYCLE, PO
     Route: 048
     Dates: start: 20060701

REACTIONS (21)
  - INSOMNIA [None]
  - LYMPHOPENIA [None]
  - ATRIAL FIBRILLATION [None]
  - TUBULOINTERSTITIAL NEPHRITIS [None]
  - CONFUSIONAL STATE [None]
  - BLOOD STEM CELL HARVEST FAILURE [None]
  - THROMBOCYTOPENIA [None]
  - RASH [None]
  - HYPERGLYCAEMIA [None]
  - NEUROPATHY PERIPHERAL [None]
  - ANAEMIA [None]
  - DISEASE PROGRESSION [None]
  - INFECTION [None]
  - RENAL FAILURE [None]
  - NEUTROPENIA [None]
  - LEUKOPENIA [None]
  - DIARRHOEA [None]
  - MUSCULAR WEAKNESS [None]
  - THROMBOSIS [None]
  - HAEMATOTOXICITY [None]
  - FATIGUE [None]
